FAERS Safety Report 21283973 (Version 2)
Quarter: 2023Q2

REPORT INFORMATION
  Report Type: Spontaneous
  Country: JP (occurrence: JP)
  Receive Date: 20220901
  Receipt Date: 20230602
  Transmission Date: 20230721
  Serious: Yes (Death, Other)
  Sender: FDA-Public Use
  Company Number: JP-BRISTOL-MYERS SQUIBB COMPANY-2022-098501

PATIENT
  Age: 80 Year
  Sex: Male
  Weight: 54 kg

DRUGS (15)
  1. REVLIMID [Suspect]
     Active Substance: LENALIDOMIDE
     Indication: Follicular lymphoma
     Dosage: REASON FOR DRUG WITHDRAWAL: DRUG ERUPTION, REASON FOR CHANGE IN DOSAGE/NUMBER OF TIMES: DESENSITIZAT
     Route: 048
     Dates: start: 20211111, end: 20211122
  2. REVLIMID [Suspect]
     Active Substance: LENALIDOMIDE
     Dosage: REASON FOR DOSE/NUMBER CHANGE: HYPOSENSITIZATION (ONCE A WEEK, TWICE A WEEK, THREE TIMES A WEEK, DAI
     Route: 048
     Dates: start: 20211213, end: 20220109
  3. REVLIMID [Suspect]
     Active Substance: LENALIDOMIDE
     Dosage: REASON FOR CHANGE IN DOSAGE/NUMBER OF TIMES: HYPOSENSITIZATION (5 MG 1 WEEK, 10 MG 1 WEEK, 15 MG 3 W
     Route: 048
     Dates: start: 20220110, end: 20220213
  4. REVLIMID [Suspect]
     Active Substance: LENALIDOMIDE
     Dosage: REASON FOR DRUG WITHDRAWAL: VISIT SCHEDULE DUE TO HOLIDAYS, REASON FOR DOSE/NUMBER CHANGE: DIARRHOEA
     Route: 048
     Dates: start: 20220221, end: 20220313
  5. REVLIMID [Suspect]
     Active Substance: LENALIDOMIDE
     Dosage: REASON FOR DOSE/NUMBER CHANGE: DIARRHOEA.
     Route: 048
     Dates: start: 20220328, end: 20220417
  6. RITUXIMAB [Concomitant]
     Active Substance: RITUXIMAB
     Indication: Follicular lymphoma
     Dates: start: 20211111, end: 20211111
  7. RITUXIMAB [Concomitant]
     Active Substance: RITUXIMAB
     Dates: start: 20211117, end: 20211117
  8. RITUXIMAB [Concomitant]
     Active Substance: RITUXIMAB
     Dates: start: 20211124, end: 20211124
  9. RITUXIMAB [Concomitant]
     Active Substance: RITUXIMAB
     Dates: start: 20211201, end: 20211201
  10. RITUXIMAB [Concomitant]
     Active Substance: RITUXIMAB
     Dates: start: 20211208, end: 20211208
  11. RITUXIMAB [Concomitant]
     Active Substance: RITUXIMAB
     Dates: start: 20220124, end: 20220124
  12. RITUXIMAB [Concomitant]
     Active Substance: RITUXIMAB
     Dates: start: 20220221, end: 20220221
  13. RITUXIMAB [Concomitant]
     Active Substance: RITUXIMAB
     Dates: start: 20220328, end: 20220328
  14. ASPIRIN [Concomitant]
     Active Substance: ASPIRIN
     Indication: Prophylaxis
     Route: 048
     Dates: start: 20211111, end: 20220423
  15. ATOVAQUONE [Concomitant]
     Active Substance: ATOVAQUONE
     Indication: Prophylaxis
     Route: 048
     Dates: start: 20211111, end: 20220423

REACTIONS (1)
  - Death [Fatal]

NARRATIVE: CASE EVENT DATE: 20220423
